FAERS Safety Report 9703055 (Version 2)
Quarter: 2013Q4

REPORT INFORMATION
  Report Type: Spontaneous
  Country: US (occurrence: US)
  Receive Date: 20131122
  Receipt Date: 20131210
  Transmission Date: 20140711
  Serious: Yes (Other)
  Sender: FDA-Public Use
  Company Number: US-BIOGENIDEC-2013BI112639

PATIENT
  Age: 50 Year
  Sex: Female
  Weight: 61 kg

DRUGS (15)
  1. TYSABRI [Suspect]
     Indication: MULTIPLE SCLEROSIS
     Route: 042
     Dates: start: 20121031, end: 20130715
  2. METHYLPHENIDATE [Concomitant]
     Route: 048
  3. NYSTATIN [Concomitant]
  4. OXYCODONE [Concomitant]
     Route: 048
  5. OXYCODONE [Concomitant]
     Route: 048
  6. TOVIAZ [Concomitant]
     Route: 048
  7. FLUTICASONE PROPIONATE [Concomitant]
     Route: 045
  8. SINGULAIR [Concomitant]
     Route: 048
  9. VENLAFAXINE [Concomitant]
     Route: 048
  10. ZYPREXA [Concomitant]
     Route: 048
  11. CRANBERRY [Concomitant]
     Route: 048
  12. LEVOTHYROXINE [Concomitant]
     Route: 048
  13. CLONAZEPAM [Concomitant]
     Route: 048
  14. KEPPRA [Concomitant]
     Indication: CONVULSION
     Route: 048
  15. BACLOFEN [Concomitant]
     Route: 048

REACTIONS (3)
  - Convulsion [Recovered/Resolved]
  - Amnesia [Not Recovered/Not Resolved]
  - Muscular weakness [Not Recovered/Not Resolved]
